FAERS Safety Report 8904168 (Version 2)
Quarter: 2012Q4

REPORT INFORMATION
  Report Type: 
  Country: US (occurrence: US)
  Receive Date: 20121112
  Receipt Date: 20121115
  Transmission Date: 20130627
  Serious: No
  Sender: FDA-Public Use
  Company Number: US-PFIZER INC-2012278554

PATIENT
  Sex: Male

DRUGS (1)
  1. ZOLOFT [Suspect]
     Dosage: 150 mg, 1x/day
     Dates: start: 1995

REACTIONS (2)
  - Agoraphobia [Unknown]
  - Social problem [Unknown]
